FAERS Safety Report 8569820 (Version 4)
Quarter: 2012Q4

REPORT INFORMATION
  Report Type: Report from Study
  Country: US (occurrence: US)
  Receive Date: 20120518
  Receipt Date: 20121214
  Transmission Date: 20130627
  Serious: Yes (Hospitalization, Other)
  Sender: FDA-Public Use
  Company Number: US-ABBOTT-12P-163-0934879-00

PATIENT
  Age: 47 Year
  Sex: Female

DRUGS (10)
  1. HUMIRA 40 MG/0.8 ML PEN [Suspect]
     Indication: CROHN^S DISEASE
     Dates: start: 2003, end: 201202
  2. HUMIRA 40 MG/0.8 ML PEN [Suspect]
     Dates: start: 20121006
  3. OMEPRAZOLE [Suspect]
     Indication: GASTROINTESTINAL MOTILITY DISORDER
     Dates: start: 2010
  4. DICYCLOMINE [Suspect]
     Indication: GASTROINTESTINAL MOTILITY DISORDER
     Dates: start: 2010
  5. MVI [Concomitant]
     Indication: PRODUCT USED FOR UNKNOWN INDICATION
  6. PROBIOTICS [Concomitant]
     Indication: PRODUCT USED FOR UNKNOWN INDICATION
  7. CALCIUM +D [Concomitant]
     Indication: PRODUCT USED FOR UNKNOWN INDICATION
  8. B 12 [Concomitant]
     Indication: PRODUCT USED FOR UNKNOWN INDICATION
     Dosage: Every 2 weeks
  9. FENTANYL [Concomitant]
     Indication: PAIN
     Dosage: Patch
  10. PROMETHAZINE [Concomitant]
     Indication: NAUSEA

REACTIONS (18)
  - Thrombosis [Unknown]
  - Vomiting [Not Recovered/Not Resolved]
  - Bronchitis [Unknown]
  - Crohn^s disease [Unknown]
  - Intestinal stenosis [Unknown]
  - Colonic obstruction [Unknown]
  - Pyrexia [Unknown]
  - Vomiting [Unknown]
  - Abdominal infection [Unknown]
  - Weight decreased [Unknown]
  - Laceration [Unknown]
  - Feeling abnormal [Unknown]
  - Fatigue [Unknown]
  - Impaired work ability [Unknown]
  - Abscess intestinal [Unknown]
  - Small intestinal obstruction [Unknown]
  - Haematemesis [Unknown]
  - Thrombosis [Unknown]
